FAERS Safety Report 16045660 (Version 1)
Quarter: 2019Q1

REPORT INFORMATION
  Report Type: Spontaneous
  Country: SE (occurrence: SE)
  Receive Date: 20190307
  Receipt Date: 20190307
  Transmission Date: 20190418
  Serious: Yes (Death, Hospitalization, Disabling)
  Sender: FDA-Public Use
  Company Number: SE-ACCORD-111017

PATIENT
  Age: 79 Year
  Sex: Female

DRUGS (9)
  1. ZOLEDRONIC ACID [Suspect]
     Active Substance: ZOLEDRONIC ACID
     Indication: OSTEOPOROSIS
     Route: 042
     Dates: start: 201806, end: 201806
  2. ACETYLSALICYLIC ACID [Concomitant]
     Active Substance: ASPIRIN
  3. JANUVIA [Concomitant]
     Active Substance: SITAGLIPTIN PHOSPHATE
  4. OXYCODONE [Concomitant]
     Active Substance: OXYCODONE
  5. KALCIPOS-D [Concomitant]
     Active Substance: CALCIUM CARBONATE\CHOLECALCIFEROL
  6. NOVOMIX [Concomitant]
     Active Substance: INSULIN ASPART
  7. FELODIPINE. [Concomitant]
     Active Substance: FELODIPINE
  8. FORXIGA [Concomitant]
     Active Substance: DAPAGLIFLOZIN
  9. ALVEDON FORTE [Concomitant]

REACTIONS (1)
  - Acute kidney injury [Fatal]

NARRATIVE: CASE EVENT DATE: 20180611
